FAERS Safety Report 7492139-1 (Version None)
Quarter: 2011Q2

REPORT INFORMATION
  Report Type: 
  Country: None (occurrence: None)
  Receive Date: 20110511
  Receipt Date: 20110429
  Transmission Date: 20111010
  Serious: Yes (Hospitalization, Other)
  Sender: FDA-Public Use
  Company Number: 2010SP057664

PATIENT
  Age: 28 Year
  Sex: Female
  Weight: 72.5755 kg

DRUGS (1)
  1. NUVARING [Suspect]
     Indication: CONTRACEPTION
     Dates: start: 20060101

REACTIONS (11)
  - INJURY [None]
  - PULMONARY EMBOLISM [None]
  - SCIATICA [None]
  - APPENDICECTOMY [None]
  - OVARIAN CYST [None]
  - HEART RATE IRREGULAR [None]
  - ANXIETY [None]
  - DEPRESSION [None]
  - PALPITATIONS [None]
  - TACHYCARDIA [None]
  - MOOD SWINGS [None]
